FAERS Safety Report 8446010-9 (Version None)
Quarter: 2012Q2

REPORT INFORMATION
  Report Type: 
  Country: None (occurrence: None)
  Receive Date: 20120323
  Receipt Date: 20111115
  Transmission Date: 20120825
  Serious: Yes (Hospitalization)
  Sender: FDA-Public Use
  Company Number: 163-21880-11090616

PATIENT
  Age: 49 Year
  Sex: Male

DRUGS (8)
  1. VELCADE [Concomitant]
  2. LOMOTIL [Concomitant]
  3. REVLIMID [Suspect]
     Indication: MULTIPLE MYELOMA
     Dosage: 25 MG, DAILY X 21 DAYS OF 28 DAYS, PO : 10 MG, DAILY X 21 DAYS OF 28 DAYS, PO
     Route: 048
     Dates: start: 20110101
  4. REVLIMID [Suspect]
     Indication: MULTIPLE MYELOMA
     Dosage: 25 MG, DAILY X 21 DAYS OF 28 DAYS, PO : 10 MG, DAILY X 21 DAYS OF 28 DAYS, PO
     Route: 048
     Dates: start: 20110801
  5. GLUCOPHAG (METFORMIN HYDROCHLORIDE) [Concomitant]
  6. ONGLYZA [Concomitant]
  7. HYOSCYAMINE SULFATE [Concomitant]
  8. ARANESP [Concomitant]

REACTIONS (2)
  - DIARRHOEA [None]
  - WEIGHT DECREASED [None]
